FAERS Safety Report 22302333 (Version 1)
Quarter: 2023Q2

REPORT INFORMATION
  Report Type: Other
  Country: DE (occurrence: None)
  Receive Date: 20230510
  Receipt Date: 20230510
  Transmission Date: 20230721
  Serious: Yes (Death, Hospitalization)
  Sender: FDA-Public Use
  Company Number: DE-ROCHE-3345921

PATIENT
  Age: 75 Year
  Sex: Male
  Weight: 112 kg

DRUGS (13)
  1. BEVACIZUMAB [Suspect]
     Active Substance: BEVACIZUMAB
     Indication: Neoplasm
     Dosage: DOSE OF LAST ADMINISTERED PRIOR TO AE/SAE ONSET WAS 540 MG ?DATE OF MOST RECENT DOSE OF PRIOR TO AE/
     Route: 042
     Dates: start: 20221130, end: 20221130
  2. IRINOTECAN [Suspect]
     Active Substance: IRINOTECAN
     Indication: Neoplasm
     Dosage: DOSE OF LAST ADMINISTERED PRIOR TO AE/SAE ONSET WAS 318.6 MG ?DATE OF MOST RECENT DOSE OF PRIOR TO A
     Route: 042
     Dates: start: 20221130, end: 20221130
  3. FLUOROURACIL [Suspect]
     Active Substance: FLUOROURACIL
     Indication: Neoplasm
     Dosage: DOSE OF LAST ADMINISTERED PRIOR TO AE/SAE ONSET WAS 4248 MG ?DATE OF MOST RECENT DOSE OF PRIOR TO AE
     Route: 042
     Dates: start: 20221130, end: 20221130
  4. LEUCOVORIN [Suspect]
     Active Substance: LEUCOVORIN
     Indication: Neoplasm
     Dosage: DOSE OF LAST ADMINISTERED PRIOR TO AE/SAE ONSET WAS 944 MG ?DATE OF MOST RECENT DOSE OF PRIOR TO AE/
     Route: 042
     Dates: start: 20221130, end: 20221130
  5. FOLIC ACID [Concomitant]
     Active Substance: FOLIC ACID
     Dosage: ONCE A WEEK EVRY THUNDERSDAY/ DAY AFTER MTX DOSE
     Route: 065
     Dates: start: 2007
  6. METHOTREXATE [Concomitant]
     Active Substance: METHOTREXATE
     Dosage: EVERY WEDNESDAY
     Route: 065
     Dates: start: 2007
  7. TAMSULOSIN [Concomitant]
     Active Substance: TAMSULOSIN
     Route: 065
     Dates: start: 20220208, end: 20221219
  8. MCP [Concomitant]
     Active Substance: METOCLOPRAMIDE HYDROCHLORIDE
     Indication: Nausea
     Route: 065
     Dates: start: 20220208, end: 20221219
  9. ONDANSETRON [Concomitant]
     Active Substance: ONDANSETRON
     Indication: Nausea
     Route: 065
     Dates: start: 20220208, end: 20221219
  10. LOPERAMIDE [Concomitant]
     Active Substance: LOPERAMIDE
     Indication: Diarrhoea
     Route: 065
     Dates: start: 20220208, end: 20220219
  11. PANTOPRAZOLE [Concomitant]
     Active Substance: PANTOPRAZOLE
     Route: 065
     Dates: start: 20221207, end: 20221219
  12. FUROSEMIDE [Concomitant]
     Active Substance: FUROSEMIDE
     Route: 065
     Dates: start: 20221207, end: 20221214
  13. METAMIZOLE [Concomitant]
     Active Substance: METAMIZOLE
     Route: 065
     Dates: start: 20221208, end: 20221219

REACTIONS (1)
  - Pneumonia [Fatal]

NARRATIVE: CASE EVENT DATE: 20221206
